FAERS Safety Report 25179398 (Version 1)
Quarter: 2025Q2

REPORT INFORMATION
  Report Type: Spontaneous
  Country: IN (occurrence: US)
  Receive Date: 20250409
  Receipt Date: 20250409
  Transmission Date: 20250716
  Serious: Yes (Hospitalization, Disabling)
  Sender: PFIZER
  Company Number: IN-PFIZER INC-202500073988

PATIENT
  Age: 44 Year
  Sex: Female

DRUGS (4)
  1. METHOTREXATE SODIUM [Suspect]
     Active Substance: METHOTREXATE SODIUM
     Indication: Central nervous system lymphoma
     Dates: start: 20240723
  2. TIRABRUTINIB [Concomitant]
     Active Substance: TIRABRUTINIB
     Dates: start: 20240730, end: 20240731
  3. RITUXIMAB [Concomitant]
     Active Substance: RITUXIMAB
     Dates: start: 20240725
  4. TEMOZOLOMIDE [Concomitant]
     Active Substance: TEMOZOLOMIDE
     Dates: start: 20240723, end: 20240729

REACTIONS (1)
  - Leukoencephalopathy [Recovered/Resolved]

NARRATIVE: CASE EVENT DATE: 20240727
